FAERS Safety Report 5323991-3 (Version None)
Quarter: 2007Q2

REPORT INFORMATION
  Report Type: 
  Country: None (occurrence: None)
  Receive Date: 20070221
  Receipt Date: 20060901
  Transmission Date: 20071010
  Serious: Yes (Other)
  Sender: FDA-Public Use
  Company Number: PHEH2006US07400

PATIENT
  Age: 57 Year
  Sex: Male

DRUGS (1)
  1. DIOVAN [Suspect]
     Dosage: ORAL
     Route: 048

REACTIONS (1)
  - HYPERTENSION [None]
